FAERS Safety Report 4391229-X (Version None)
Quarter: 2004Q2

REPORT INFORMATION
  Report Type: 
  Country: None (occurrence: None)
  Receive Date: 20040621
  Receipt Date: 20040130
  Transmission Date: 20050107
  Serious: Yes (Other)
  Sender: FDA-Public Use
  Company Number: USA-2002-0002248

PATIENT
  Sex: Male

DRUGS (3)
  1. OXYCONTIN [Suspect]
     Indication: PAIN
     Dosage: 40 MG, BID, ORAL
     Route: 048
  2. VALIUM [Concomitant]
  3. SOMA [Concomitant]

REACTIONS (3)
  - ANXIETY [None]
  - DRUG DEPENDENCE [None]
  - PAIN [None]
